FAERS Safety Report 9064411 (Version 1)
Quarter: 2013Q1

REPORT INFORMATION
  Report Type: Report from Study
  Country: US (occurrence: US)
  Receive Date: 20130131
  Receipt Date: 20130131
  Transmission Date: 20140127
  Serious: Yes (Hospitalization, Other)
  Sender: FDA-Public Use
  Company Number: US-ABBOTT-12P-163-1013548-00

PATIENT
  Sex: Male
  Weight: 83.99 kg

DRUGS (1)
  1. HUMIRA [Suspect]
     Indication: CROHN^S DISEASE
     Route: 058
     Dates: start: 2009, end: 201206

REACTIONS (5)
  - Pleural effusion [Recovered/Resolved]
  - Large intestine perforation [Recovered/Resolved]
  - Abdominal pain [Recovered/Resolved]
  - Sepsis [Recovered/Resolved]
  - Pancreas infection [Recovered/Resolved]
